FAERS Safety Report 17450158 (Version 6)
Quarter: 2022Q2

REPORT INFORMATION
  Report Type: Report from Study
  Country: AT (occurrence: AT)
  Receive Date: 20200224
  Receipt Date: 20220506
  Transmission Date: 20220721
  Serious: Yes (Hospitalization, Other)
  Sender: FDA-Public Use
  Company Number: AT-ROCHE-2307899

PATIENT
  Age: 53 Year
  Sex: Female
  Weight: 70 kg

DRUGS (19)
  1. TRASTUZUMAB [Suspect]
     Active Substance: TRASTUZUMAB
     Indication: HER2 positive breast cancer
     Dosage: 576 MILLIGRAM, Q3WK
     Route: 041
     Dates: start: 20181205
  2. XGEVA [Suspect]
     Active Substance: DENOSUMAB
     Indication: HER2 positive breast cancer
     Dosage: 120 MILLIGRAM, Q4WK
     Route: 058
     Dates: start: 201903
  3. PERTUZUMAB [Suspect]
     Active Substance: PERTUZUMAB
     Indication: HER2 positive breast cancer
     Dosage: 840 MILLIGRAM, Q3WK
     Route: 042
     Dates: start: 20181205
  4. LETROZOLE [Suspect]
     Active Substance: LETROZOLE
     Indication: HER2 positive breast cancer
     Dosage: 2.5 MILLIGRAM, QD
     Route: 048
     Dates: start: 20190321
  5. DOCETAXEL [Suspect]
     Active Substance: DOCETAXEL
     Indication: HER2 positive breast cancer
     Dosage: 132.6 MILLIGRAM, Q3WK
     Route: 065
     Dates: start: 20181205
  6. ADO-TRASTUZUMAB EMTANSINE [Suspect]
     Active Substance: ADO-TRASTUZUMAB EMTANSINE
     Indication: HER2 positive breast cancer
     Dosage: 248.4 MILLIGRAM, Q3WK
     Route: 042
     Dates: start: 20200401, end: 20200806
  7. NEULASTA [Concomitant]
     Active Substance: PEGFILGRASTIM
     Indication: Product used for unknown indication
     Dosage: UNK
     Route: 065
     Dates: start: 20181204
  8. ASCORBIC ACID\CALCIUM PHOSPHATE\CHOLECALCIFEROL\CITRIC ACID MONOHYDRAT [Concomitant]
     Active Substance: ASCORBIC ACID\CALCIUM PHOSPHATE\CHOLECALCIFEROL\CITRIC ACID MONOHYDRATE
     Dosage: UNK
     Route: 065
     Dates: start: 20190412
  9. ANTIFLAT [Concomitant]
     Dosage: UNK
     Route: 065
     Dates: start: 20181227
  10. GUTTALAX [Concomitant]
     Dosage: UNK
     Route: 065
     Dates: start: 20190106
  11. Paspertin [Concomitant]
     Dosage: UNK
     Dates: start: 20190117
  12. HYDROCHLOROTHIAZIDE\OLMESARTAN MEDOXOMIL [Concomitant]
     Active Substance: HYDROCHLOROTHIAZIDE\OLMESARTAN MEDOXOMIL
     Dosage: 20/12.5 MILLIGRAM
     Route: 065
     Dates: start: 20190415
  13. DEXAMETHASONE [Concomitant]
     Active Substance: DEXAMETHASONE
     Dosage: UNK
     Route: 065
     Dates: start: 20181204
  14. POLYETHYLENE GLYCOL 3350\POTASSIUM CHLORIDE\SODIUM BICARBONATE\SODIUM [Concomitant]
     Active Substance: POLYETHYLENE GLYCOL 3350\POTASSIUM CHLORIDE\SODIUM BICARBONATE\SODIUM CHLORIDE
     Dosage: UNK
     Route: 065
     Dates: start: 20190106
  15. CANDESARTAN CILEXETIL\HYDROCHLOROTHIAZIDE [Concomitant]
     Active Substance: CANDESARTAN CILEXETIL\HYDROCHLOROTHIAZIDE
     Dosage: UNK
     Dates: start: 20190820, end: 20200302
  16. CANDESARTAN CILEXETIL\HYDROCHLOROTHIAZIDE [Concomitant]
     Active Substance: CANDESARTAN CILEXETIL\HYDROCHLOROTHIAZIDE
     Dosage: UNK
     Dates: start: 20200302
  17. ZOVIRAX [Concomitant]
     Active Substance: ACYCLOVIR
     Indication: Oral herpes
     Dosage: UNK
     Route: 065
     Dates: start: 20191015
  18. CARVEDILOL [Concomitant]
     Active Substance: CARVEDILOL
     Dosage: UNK
     Dates: start: 20200210
  19. LERCANIDIPINE HYDROCHLORIDE [Concomitant]
     Active Substance: LERCANIDIPINE HYDROCHLORIDE
     Dosage: UNK
     Dates: start: 20200226

REACTIONS (11)
  - Hypertensive crisis [Recovered/Resolved]
  - Tonsillitis [Recovered/Resolved]
  - Myalgia [Not Recovered/Not Resolved]
  - Hypertension [Recovering/Resolving]
  - Pain in extremity [Unknown]
  - Arthralgia [Not Recovered/Not Resolved]
  - Constipation [Recovered/Resolved]
  - Blood pressure increased [Recovered/Resolved]
  - Headache [Recovered/Resolved]
  - Fatigue [Recovered/Resolved]
  - Arthralgia [Not Recovered/Not Resolved]

NARRATIVE: CASE EVENT DATE: 20190415
